FAERS Safety Report 22130962 (Version 1)
Quarter: 2023Q1

REPORT INFORMATION
  Report Type: Spontaneous
  Country: JP (occurrence: JP)
  Receive Date: 20230323
  Receipt Date: 20230323
  Transmission Date: 20230418
  Serious: Yes (Hospitalization, Other)
  Sender: FDA-Public Use
  Company Number: JP-BAYER-2022A167708

PATIENT
  Age: 7 Decade
  Sex: Female
  Weight: 55.9 kg

DRUGS (7)
  1. STIVARGA [Suspect]
     Active Substance: REGORAFENIB
     Indication: Colon cancer
     Dosage: 120MG, QD , 3 CONSECUTIVE WEEKS, THEN 1 WEEK OFF
     Route: 048
     Dates: start: 202211
  2. SOLANAX [Concomitant]
     Active Substance: ALPRAZOLAM
  3. LANSOPRAZOLE [Concomitant]
     Active Substance: LANSOPRAZOLE
  4. AMLODIPINE [Concomitant]
     Active Substance: AMLODIPINE BESYLATE
  5. ASVERIN (RIBAVIRIN) [Concomitant]
     Active Substance: RIBAVIRIN
  6. CARBOCYSTEINE [Concomitant]
     Active Substance: CARBOCYSTEINE
  7. UREA [Concomitant]
     Active Substance: UREA

REACTIONS (9)
  - Drug-induced liver injury [Recovering/Resolving]
  - Aspartate aminotransferase increased [Recovering/Resolving]
  - Ammonia increased [Recovering/Resolving]
  - Alanine aminotransferase increased [Recovering/Resolving]
  - Blood bilirubin increased [Recovering/Resolving]
  - C-reactive protein decreased [Recovering/Resolving]
  - Hepatic failure [None]
  - Vanishing bile duct syndrome [None]
  - Off label use [None]

NARRATIVE: CASE EVENT DATE: 20221101
